FAERS Safety Report 5893996-2 (Version None)
Quarter: 2008Q3

REPORT INFORMATION
  Report Type: 
  Country: None (occurrence: None)
  Receive Date: 20080923
  Receipt Date: 20080905
  Transmission Date: 20090109
  Serious: Yes (Other)
  Sender: FDA-Public Use
  Company Number: GB-B.I. PHARMACEUTICALS,INC./RIDGEFIELD-2008-UK-01538UK

PATIENT
  Sex: Male
  Weight: 63 kg

DRUGS (5)
  1. SPIRIVA [Suspect]
     Indication: CHRONIC OBSTRUCTIVE PULMONARY DISEASE
     Dosage: 18MCG
     Route: 055
     Dates: start: 20080813, end: 20080827
  2. NIFEDIPINE [Concomitant]
     Dosage: 20MG
     Route: 048
     Dates: start: 20030101
  3. BENDROFLUMETHAZIDE [Concomitant]
     Dosage: 2.5MG
     Route: 048
     Dates: start: 20030101
  4. PRAVASTATIN [Concomitant]
     Dosage: 40MG
     Route: 048
     Dates: start: 20030101
  5. BRICANYL [Concomitant]
     Dosage: 500MCG
     Route: 055
     Dates: start: 20060101

REACTIONS (2)
  - PRURITUS [None]
  - RASH MACULAR [None]
